FAERS Safety Report 7422569-5 (Version None)
Quarter: 2011Q2

REPORT INFORMATION
  Report Type: 
  Country: None (occurrence: None)
  Receive Date: 20110419
  Receipt Date: 20110405
  Transmission Date: 20111010
  Serious: Yes (Hospitalization)
  Sender: FDA-Public Use
  Company Number: FR-JNJFOC-20110402677

PATIENT
  Age: 27 Year
  Sex: Female

DRUGS (12)
  1. IDEOS [Concomitant]
     Indication: PRODUCT USED FOR UNKNOWN INDICATION
     Route: 048
  2. FLUINDIONE [Concomitant]
     Indication: PRODUCT USED FOR UNKNOWN INDICATION
     Route: 048
  3. PENTASA [Suspect]
     Indication: ILL-DEFINED DISORDER
     Route: 048
  4. PENTASA [Suspect]
     Route: 048
  5. ENTOCORT EC [Concomitant]
     Indication: PRODUCT USED FOR UNKNOWN INDICATION
     Route: 048
  6. ENTOCORT EC [Concomitant]
     Route: 048
  7. REMICADE [Suspect]
     Indication: CROHN'S DISEASE
     Route: 042
  8. PENTASA [Suspect]
     Route: 048
  9. SOLUPRED [Concomitant]
     Route: 048
  10. ENTOCORT EC [Concomitant]
     Route: 048
  11. HYDROCORTISONE [Concomitant]
     Indication: PRODUCT USED FOR UNKNOWN INDICATION
     Dosage: END DATE: MAY-2010
     Route: 048
  12. SOLUPRED [Concomitant]
     Indication: PRODUCT USED FOR UNKNOWN INDICATION
     Route: 048

REACTIONS (1)
  - SYSTEMIC LUPUS ERYTHEMATOSUS [None]
